FAERS Safety Report 4538226-9 (Version None)
Quarter: 2004Q4

REPORT INFORMATION
  Report Type: 
  Country: None (occurrence: None)
  Receive Date: 20041227
  Receipt Date: 20041215
  Transmission Date: 20050328
  Serious: Yes (Death)
  Sender: FDA-Public Use
  Company Number: US-JNJFOC-20041204877

PATIENT
  Sex: Female

DRUGS (11)
  1. INFIXIMAB [Suspect]
     Indication: RHEUMATOID ARTHRITIS
     Route: 042
  2. FOSAMAX [Concomitant]
  3. LASIX [Concomitant]
  4. OSCAL D [Concomitant]
  5. OSCAL D [Concomitant]
  6. TRACHEER/BOSENTA [Concomitant]
  7. AMBIEN [Concomitant]
  8. COUMADIN [Concomitant]
  9. PLAQUENIL [Concomitant]
  10. SYNTHROID [Concomitant]
  11. TYLENOL (CAPLET) [Concomitant]

REACTIONS (1)
  - PULMONARY HYPERTENSION [None]
